FAERS Safety Report 6655287-1 (Version None)
Quarter: 2010Q1

REPORT INFORMATION
  Report Type: 
  Country: None (occurrence: None)
  Receive Date: 20100329
  Receipt Date: 20100326
  Transmission Date: 20100710
  Serious: Yes (Other)
  Sender: FDA-Public Use
  Company Number: AT-BRISTOL-MYERS SQUIBB COMPANY-15037690

PATIENT
  Age: 42 Year
  Sex: Female
  Weight: 120 kg

DRUGS (3)
  1. ABILIFY [Suspect]
     Indication: PSYCHOTIC DISORDER
     Dosage: FROM JAN08=5MG,DOSE INCREASED INTO 7.5MG FROM JAN10.
     Route: 048
     Dates: start: 20080101
  2. WELLBUTRIN [Concomitant]
     Dosage: BRAND=WELLBUTRIN XR,RETARDTABLETTEN
     Route: 048
     Dates: start: 20091001
  3. LAMOTRIGINE [Concomitant]
     Route: 048
     Dates: start: 20090301

REACTIONS (2)
  - LACRIMATION INCREASED [None]
  - SALIVARY HYPERSECRETION [None]
